FAERS Safety Report 7156975-3 (Version None)
Quarter: 2010Q4

REPORT INFORMATION
  Report Type: 
  Country: None (occurrence: None)
  Receive Date: 20101214
  Receipt Date: 20100112
  Transmission Date: 20110411
  Serious: No
  Sender: FDA-Public Use
  Company Number: US-ASTRAZENECA-2010SE01444

PATIENT
  Age: 770 Month
  Sex: Male
  Weight: 79.4 kg

DRUGS (3)
  1. CRESTOR [Suspect]
     Indication: BLOOD CHOLESTEROL INCREASED
     Route: 048
     Dates: start: 20091012
  2. MULTI-VITAMIN [Concomitant]
  3. COQ10 SUPPLEMENT [Concomitant]

REACTIONS (4)
  - GLOSSODYNIA [None]
  - NAUSEA [None]
  - ORAL DISCOMFORT [None]
  - TONGUE COATED [None]
